FAERS Safety Report 5589451-X (Version None)
Quarter: 2008Q1

REPORT INFORMATION
  Report Type: 
  Country: None (occurrence: None)
  Receive Date: 20080109
  Receipt Date: 20080109
  Transmission Date: 20080703
  Serious: No
  Sender: FDA-Public Use
  Company Number: None

PATIENT
  Age: 66 Year
  Sex: Female

DRUGS (1)
  1. CALCIUM CARBONATE TABLET-CHEWABLE (CALCIUM CARBONATE) ASSORTED BERRIES [Suspect]
     Indication: SUPPLEMENTATION THERAPY
     Dosage: ORAL
     Route: 048

REACTIONS (2)
  - CALCULUS URETERIC [None]
  - NEPHROLITHIASIS [None]
